FAERS Safety Report 23976447 (Version 2)
Quarter: 2025Q2

REPORT INFORMATION
  Report Type: Spontaneous
  Country: US (occurrence: US)
  Receive Date: 20240614
  Receipt Date: 20250428
  Transmission Date: 20250717
  Serious: Yes (Hospitalization)
  Sender: ELI LILLY AND COMPANY
  Company Number: US-ELI_LILLY_AND_COMPANY-US202406000957

PATIENT
  Age: 48 Year
  Sex: Male

DRUGS (3)
  1. BASAGLAR [Suspect]
     Active Substance: INSULIN GLARGINE
     Indication: Diabetes mellitus
     Dosage: 40 U, DAILY
     Route: 058
     Dates: start: 202402
  2. INSULIN LISPRO [Suspect]
     Active Substance: INSULIN LISPRO
     Route: 058
  3. ELIQUIS [Concomitant]
     Active Substance: APIXABAN
     Indication: Product used for unknown indication

REACTIONS (4)
  - Atrial fibrillation [Recovering/Resolving]
  - Eye disorder [Recovering/Resolving]
  - Renal disorder [Not Recovered/Not Resolved]
  - Incorrect dose administered [Unknown]
